FAERS Safety Report 23315880 (Version 2)
Quarter: 2024Q1

REPORT INFORMATION
  Report Type: Report from Study
  Country: CN (occurrence: CN)
  Receive Date: 20231219
  Receipt Date: 20240117
  Transmission Date: 20240409
  Serious: No
  Sender: FDA-Public Use
  Company Number: CN-PFIZER INC-PV202300203022

PATIENT
  Age: 68 Year
  Sex: Female

DRUGS (114)
  1. NIRMATRELVIR\RITONAVIR [Suspect]
     Active Substance: NIRMATRELVIR\RITONAVIR
     Indication: COVID-19
     Dosage: UNK
     Dates: start: 20220422, end: 20220427
  2. NIRMATRELVIR\RITONAVIR [Suspect]
     Active Substance: NIRMATRELVIR\RITONAVIR
     Dosage: [NIRMATRELVIR 300MG]/[RITONAVIR 100MG], 2X/DAY
     Dates: start: 20220502, end: 20220507
  3. NIRMATRELVIR\RITONAVIR [Suspect]
     Active Substance: NIRMATRELVIR\RITONAVIR
     Dosage: [NIRMATRELVIR 300MG]/[RITONAVIR 100MG], 2X/DAY
     Dates: start: 20220511, end: 20220513
  4. HERBALS\MENTHOL [Concomitant]
     Active Substance: HERBALS\MENTHOL
     Indication: Antipyresis
     Dosage: LIAN HUA QING WEN KE LI, NASOGASTIC
     Dates: start: 20220413, end: 20220413
  5. HERBALS\MENTHOL [Concomitant]
     Active Substance: HERBALS\MENTHOL
     Indication: Detoxification
  6. OXYGEN [Concomitant]
     Active Substance: OXYGEN
     Indication: Oxygen therapy
     Dosage: OXYGEN INHALE
     Route: 045
     Dates: start: 20220412, end: 20220513
  7. AMLODIPINE BESYLATE [Concomitant]
     Active Substance: AMLODIPINE BESYLATE
     Indication: Drug therapy
     Dosage: NASOGASTRIC
     Dates: start: 20220413, end: 20220513
  8. ENTERAL NUTRITIONAL SUSPENSION (TPF) [Concomitant]
     Indication: Nutritional supplementation
     Dosage: NASOGASTRIC
     Dates: start: 20220414, end: 20220422
  9. ENTERAL NUTRITIONAL SUSPENSION (TPF) [Concomitant]
     Indication: Anti-infective therapy
     Dosage: NASOGASTRIC
     Dates: start: 20220424, end: 20220424
  10. ENTERAL NUTRITIONAL SUSPENSION (TPF) [Concomitant]
     Dosage: NASOGASTRIC
     Dates: start: 20220424, end: 20220513
  11. DEXTROSE\SODIUM CHLORIDE [Concomitant]
     Active Substance: DEXTROSE\SODIUM CHLORIDE
     Indication: Nutritional supplementation
     Dosage: NASOGASTRIC
     Dates: start: 20220414, end: 20220414
  12. DEXTROSE\SODIUM CHLORIDE [Concomitant]
     Active Substance: DEXTROSE\SODIUM CHLORIDE
     Dosage: NASOGASTRIC
     Dates: start: 20220414, end: 20220422
  13. GLYCERIN;PURIFIED WATER [Concomitant]
     Indication: Laxative supportive care
     Dosage: ENEMA GLYCERINI
     Route: 060
     Dates: start: 20220415, end: 20220513
  14. INSULIN HUMAN [Concomitant]
     Active Substance: INSULIN HUMAN
     Indication: Fluid replacement
     Dosage: UNK
     Route: 042
     Dates: start: 20220421, end: 20220421
  15. INSULIN HUMAN [Concomitant]
     Active Substance: INSULIN HUMAN
     Indication: Blood glucose increased
     Dosage: UNK
     Route: 042
     Dates: start: 20220422, end: 20220422
  16. INSULIN HUMAN [Concomitant]
     Active Substance: INSULIN HUMAN
     Indication: Drug therapy
     Dosage: UNK
     Route: 042
     Dates: start: 20220422, end: 20220422
  17. INSULIN HUMAN [Concomitant]
     Active Substance: INSULIN HUMAN
     Dosage: UNK
     Route: 042
     Dates: start: 20220422, end: 20220422
  18. INSULIN HUMAN [Concomitant]
     Active Substance: INSULIN HUMAN
     Dosage: UNK
     Route: 042
     Dates: start: 20220423, end: 20220423
  19. INSULIN HUMAN [Concomitant]
     Active Substance: INSULIN HUMAN
     Dosage: UNK
     Route: 042
     Dates: start: 20220424, end: 20220424
  20. INSULIN HUMAN [Concomitant]
     Active Substance: INSULIN HUMAN
     Dosage: UNK
     Route: 058
     Dates: start: 20220424, end: 20220424
  21. INSULIN HUMAN [Concomitant]
     Active Substance: INSULIN HUMAN
     Dosage: UNK
     Route: 058
     Dates: start: 20220424, end: 20220427
  22. INSULIN HUMAN [Concomitant]
     Active Substance: INSULIN HUMAN
     Dosage: UNK
     Route: 058
     Dates: start: 20220424, end: 20220427
  23. INSULIN HUMAN [Concomitant]
     Active Substance: INSULIN HUMAN
     Dosage: UNK
     Route: 058
     Dates: start: 20220424, end: 20220428
  24. INSULIN HUMAN [Concomitant]
     Active Substance: INSULIN HUMAN
     Dosage: UNK
     Route: 042
     Dates: start: 20220426, end: 20220426
  25. INSULIN HUMAN [Concomitant]
     Active Substance: INSULIN HUMAN
     Dosage: UNK
     Route: 042
     Dates: start: 20220426, end: 20220430
  26. INSULIN HUMAN [Concomitant]
     Active Substance: INSULIN HUMAN
     Dosage: UNK
     Route: 058
     Dates: start: 20220428, end: 20220501
  27. INSULIN HUMAN [Concomitant]
     Active Substance: INSULIN HUMAN
     Dosage: UNK
     Route: 058
     Dates: start: 20220506, end: 20220506
  28. INSULIN HUMAN [Concomitant]
     Active Substance: INSULIN HUMAN
     Dosage: UNK
     Route: 042
     Dates: start: 20220507, end: 20220507
  29. INSULIN HUMAN [Concomitant]
     Active Substance: INSULIN HUMAN
     Dosage: UNK
     Route: 042
     Dates: start: 20220508, end: 20220508
  30. INSULIN HUMAN [Concomitant]
     Active Substance: INSULIN HUMAN
     Dosage: UNK
     Route: 058
     Dates: start: 20220510, end: 20220510
  31. INSULIN HUMAN [Concomitant]
     Active Substance: INSULIN HUMAN
     Dosage: UNK
     Route: 042
     Dates: start: 20220511, end: 20220511
  32. PROTAMINE RECOMBINANT HUMAN INSULIN [Concomitant]
     Indication: Drug therapy
     Dosage: MIXED PROTAMINE RECOMBINANT HUMAN INSULIN INJECTION (30R)
     Route: 058
     Dates: start: 20220424, end: 20220425
  33. PROTAMINE RECOMBINANT HUMAN INSULIN [Concomitant]
     Dosage: MIXED PROTAMINE RECOMBINANT HUMAN INSULIN INJECTION (30R)
     Route: 058
     Dates: start: 20220506, end: 20220506
  34. PROTAMINE RECOMBINANT HUMAN INSULIN [Concomitant]
     Dosage: MIXED PROTAMINE RECOMBINANT HUMAN INSULIN INJECTION (30R)
     Route: 058
     Dates: start: 20220506, end: 20220506
  35. PROTAMINE RECOMBINANT HUMAN INSULIN [Concomitant]
     Dosage: MIXED PROTAMINE RECOMBINANT HUMAN INSULIN INJECTION (30R)
     Route: 058
     Dates: start: 20220506, end: 20220508
  36. PROTAMINE RECOMBINANT HUMAN INSULIN [Concomitant]
     Dosage: MIXED PROTAMINE RECOMBINANT HUMAN INSULIN INJECTION (30R)
     Route: 058
     Dates: start: 20220506, end: 20220508
  37. PROTAMINE RECOMBINANT HUMAN INSULIN [Concomitant]
     Dosage: MIXED PROTAMINE RECOMBINANT HUMAN INSULIN INJECTION (30R)
     Route: 058
     Dates: start: 20220508, end: 20220508
  38. PROTAMINE RECOMBINANT HUMAN INSULIN [Concomitant]
     Dosage: MIXED PROTAMINE RECOMBINANT HUMAN INSULIN INJECTION (30R)
     Route: 058
     Dates: start: 20220510, end: 20220511
  39. PROTAMINE RECOMBINANT HUMAN INSULIN [Concomitant]
     Dosage: MIXED PROTAMINE RECOMBINANT HUMAN INSULIN INJECTION (30R)
     Route: 058
     Dates: start: 20220510, end: 20220511
  40. PROTAMINE RECOMBINANT HUMAN INSULIN [Concomitant]
     Dosage: MIXED PROTAMINE RECOMBINANT HUMAN INSULIN INJECTION (30R)
     Route: 058
     Dates: start: 20220511, end: 20220511
  41. PROTAMINE RECOMBINANT HUMAN INSULIN [Concomitant]
     Dosage: MIXED PROTAMINE RECOMBINANT HUMAN INSULIN INJECTION (30R)
     Route: 058
     Dates: start: 20220511, end: 20220513
  42. PROTAMINE RECOMBINANT HUMAN INSULIN [Concomitant]
     Dosage: MIXED PROTAMINE RECOMBINANT HUMAN INSULIN INJECTION (30R)
     Route: 058
     Dates: start: 20220511, end: 20220513
  43. ISOPHANE PROTAMINE RECOMBINANT HUMAN INSULIN [Concomitant]
     Indication: Drug therapy
     Dosage: UNK
     Route: 058
     Dates: start: 20220425, end: 20220425
  44. ISOPHANE PROTAMINE RECOMBINANT HUMAN INSULIN [Concomitant]
     Dosage: UNK
     Route: 058
     Dates: start: 20220425, end: 20220426
  45. ISOPHANE PROTAMINE RECOMBINANT HUMAN INSULIN [Concomitant]
     Dosage: UNK
     Route: 058
     Dates: start: 20220426, end: 20220430
  46. ISOPHANE PROTAMINE RECOMBINANT HUMAN INSULIN [Concomitant]
     Dosage: UNK
     Route: 058
     Dates: start: 20220428, end: 20220430
  47. ISOPHANE PROTAMINE RECOMBINANT HUMAN INSULIN [Concomitant]
     Dosage: UNK
     Route: 058
     Dates: start: 20220430, end: 20220430
  48. ISOPHANE PROTAMINE RECOMBINANT HUMAN INSULIN [Concomitant]
     Dosage: UNK
     Route: 058
     Dates: start: 20220430, end: 20220430
  49. ISOPHANE PROTAMINE RECOMBINANT HUMAN INSULIN [Concomitant]
     Dosage: UNK
     Route: 058
     Dates: start: 20220430, end: 20220502
  50. ISOPHANE PROTAMINE RECOMBINANT HUMAN INSULIN [Concomitant]
     Dosage: UNK
     Route: 058
     Dates: start: 20220503, end: 20220503
  51. ISOPHANE PROTAMINE RECOMBINANT HUMAN INSULIN [Concomitant]
     Dosage: UNK
     Route: 058
     Dates: start: 20220503, end: 20220506
  52. ISOPHANE PROTAMINE RECOMBINANT HUMAN INSULIN [Concomitant]
     Dosage: UNK
     Route: 058
     Dates: start: 20220506, end: 20220506
  53. MEROPENEM [Concomitant]
     Active Substance: MEROPENEM
     Indication: Anti-infective therapy
     Dosage: UNK
     Route: 042
     Dates: start: 20220422, end: 20220422
  54. MEROPENEM [Concomitant]
     Active Substance: MEROPENEM
     Dosage: UNK
     Route: 042
     Dates: start: 20220422, end: 20220430
  55. HEPARIN SODIUM [Concomitant]
     Active Substance: HEPARIN SODIUM
     Indication: Anticoagulant therapy
     Dosage: UNK
     Route: 058
     Dates: start: 20220422, end: 20220504
  56. METOPROLOL SUCCINATE [Concomitant]
     Active Substance: METOPROLOL SUCCINATE
     Indication: Heart rate abnormal
     Dosage: SUSTAINED-RELEASE TABLETS
     Route: 048
     Dates: start: 20220424, end: 20220424
  57. METOPROLOL SUCCINATE [Concomitant]
     Active Substance: METOPROLOL SUCCINATE
     Dosage: SUSTAINED-RELEASE TABLETSUNK
     Route: 048
     Dates: start: 20220424, end: 20220503
  58. SODIUM BICARBONATE [Concomitant]
     Active Substance: SODIUM BICARBONATE
     Indication: Therapeutic gargle
     Dosage: UNK
     Route: 048
     Dates: start: 20220426, end: 20220513
  59. ANDROGRAPHOLIDE [Concomitant]
     Active Substance: ANDROGRAPHOLIDE
     Indication: Antiinflammatory therapy
     Dosage: UNK
     Route: 042
     Dates: start: 20220426, end: 20220426
  60. ANDROGRAPHOLIDE [Concomitant]
     Active Substance: ANDROGRAPHOLIDE
     Indication: Detoxification
     Dosage: UNK
     Route: 042
     Dates: start: 20220426, end: 20220430
  61. POTASSIUM CHLORIDE [Concomitant]
     Active Substance: POTASSIUM CHLORIDE
     Indication: Mineral supplementation
     Dosage: SUSTAINED-RELEASE TABLETS
     Route: 048
     Dates: start: 20220426, end: 20220426
  62. POTASSIUM CHLORIDE [Concomitant]
     Active Substance: POTASSIUM CHLORIDE
     Dosage: SUSTAINED-RELEASE TABLETS
     Route: 048
     Dates: start: 20220426, end: 20220501
  63. ALBUMIN HUMAN [Concomitant]
     Active Substance: ALBUMIN HUMAN
     Indication: Blood albumin increased
     Dosage: UNK
     Route: 042
     Dates: start: 20220424, end: 20220424
  64. ALBUMIN HUMAN [Concomitant]
     Active Substance: ALBUMIN HUMAN
     Dosage: UNK
     Route: 042
     Dates: start: 20220426, end: 20220427
  65. ALBUMIN HUMAN [Concomitant]
     Active Substance: ALBUMIN HUMAN
     Dosage: UNK
     Route: 042
     Dates: start: 20220427, end: 20220430
  66. ALBUMIN HUMAN [Concomitant]
     Active Substance: ALBUMIN HUMAN
     Dosage: UNK
     Route: 042
     Dates: start: 20220501, end: 20220501
  67. ALBUMIN HUMAN [Concomitant]
     Active Substance: ALBUMIN HUMAN
     Dosage: UNK
     Route: 042
     Dates: start: 20220501, end: 20220503
  68. ALBUMIN HUMAN [Concomitant]
     Active Substance: ALBUMIN HUMAN
     Dosage: UNK
     Route: 042
     Dates: start: 20220501, end: 20220503
  69. POTASSIUM CHLORIDE [Concomitant]
     Active Substance: POTASSIUM CHLORIDE
     Indication: Mineral supplementation
     Dosage: UNK
     Route: 042
     Dates: start: 20220422, end: 20220422
  70. POTASSIUM CHLORIDE [Concomitant]
     Active Substance: POTASSIUM CHLORIDE
     Indication: Electrolyte substitution therapy
     Dosage: UNK
     Route: 048
     Dates: start: 20220427, end: 20220430
  71. POTASSIUM CHLORIDE [Concomitant]
     Active Substance: POTASSIUM CHLORIDE
     Dosage: UNK
     Route: 048
     Dates: start: 20220430, end: 20220430
  72. POTASSIUM CHLORIDE [Concomitant]
     Active Substance: POTASSIUM CHLORIDE
     Dosage: UNK
     Route: 048
     Dates: start: 20220430, end: 20220501
  73. POTASSIUM CHLORIDE [Concomitant]
     Active Substance: POTASSIUM CHLORIDE
     Dosage: UNK
     Route: 042
     Dates: start: 20220505, end: 20220506
  74. POTASSIUM CHLORIDE [Concomitant]
     Active Substance: POTASSIUM CHLORIDE
     Dosage: NASOGASTRIC
     Dates: start: 20220506, end: 20220506
  75. POTASSIUM CHLORIDE [Concomitant]
     Active Substance: POTASSIUM CHLORIDE
     Dosage: NASOGASTRIC
     Dates: start: 20220506, end: 20220507
  76. POTASSIUM CHLORIDE [Concomitant]
     Active Substance: POTASSIUM CHLORIDE
     Dosage: NASOGASTRIC
     Dates: start: 20220506, end: 20220507
  77. SODIUM CHLORIDE [Concomitant]
     Active Substance: SODIUM CHLORIDE
     Indication: Electrolyte substitution therapy
     Dosage: NASOGASTRIC
     Dates: start: 20220506, end: 20220506
  78. SODIUM CHLORIDE [Concomitant]
     Active Substance: SODIUM CHLORIDE
     Dosage: NASOGASTRIC
     Dates: start: 20220506, end: 20220507
  79. MOSAPRIDE CITRATE [Concomitant]
     Active Substance: MOSAPRIDE CITRATE
     Indication: Gastric hypermotility
     Dosage: UNK
     Route: 048
     Dates: start: 20220427, end: 20220505
  80. FUROSEMIDE [Concomitant]
     Active Substance: FUROSEMIDE
     Indication: Polyuria
     Dosage: UNK
     Route: 042
     Dates: start: 20220423, end: 20220423
  81. FUROSEMIDE [Concomitant]
     Active Substance: FUROSEMIDE
     Dosage: UNK
     Route: 042
     Dates: start: 20220427, end: 20220427
  82. FUROSEMIDE [Concomitant]
     Active Substance: FUROSEMIDE
     Dosage: UNK
     Route: 042
     Dates: start: 20220430, end: 20220430
  83. FUROSEMIDE [Concomitant]
     Active Substance: FUROSEMIDE
     Dosage: UNK
     Route: 042
     Dates: start: 20220430, end: 20220501
  84. FUROSEMIDE [Concomitant]
     Active Substance: FUROSEMIDE
     Dosage: UNK
     Route: 042
     Dates: start: 20220501, end: 20220506
  85. FUROSEMIDE [Concomitant]
     Active Substance: FUROSEMIDE
     Dosage: UNK
     Route: 042
     Dates: start: 20220502, end: 20220502
  86. TAN RE QING [Concomitant]
     Indication: Antipyresis
     Dosage: UNK
     Route: 048
     Dates: start: 20220430, end: 20220511
  87. TAN RE QING [Concomitant]
     Indication: Detoxification
  88. COMPOUND AMINO ACIDS INJECTION (18AA-IX) [Concomitant]
     Indication: Nutritional supplementation
     Dosage: UNK
     Route: 042
     Dates: start: 20220430, end: 20220506
  89. THYMALFASIN [Concomitant]
     Active Substance: THYMALFASIN
     Indication: Immune system disorder
     Dosage: UNK
     Route: 058
     Dates: start: 20220501, end: 20220513
  90. MOXALACTAM DISODIUM [Concomitant]
     Active Substance: MOXALACTAM DISODIUM
     Indication: Anti-infective therapy
     Dosage: UNK
     Route: 042
     Dates: start: 20220502, end: 20220502
  91. MOXALACTAM DISODIUM [Concomitant]
     Active Substance: MOXALACTAM DISODIUM
     Dosage: UNK
     Route: 042
     Dates: start: 20220502, end: 20220506
  92. ENOXAPARIN SODIUM [Concomitant]
     Active Substance: ENOXAPARIN SODIUM
     Indication: Antiallergic therapy
     Dosage: UNK
     Route: 058
     Dates: start: 20220404, end: 20220405
  93. ENOXAPARIN SODIUM [Concomitant]
     Active Substance: ENOXAPARIN SODIUM
     Dosage: UNK
     Route: 058
     Dates: start: 20220504, end: 20220504
  94. ENOXAPARIN SODIUM [Concomitant]
     Active Substance: ENOXAPARIN SODIUM
     Dosage: UNK
     Route: 058
     Dates: start: 20220507, end: 20220513
  95. ESOMEPRAZOLE SODIUM [Concomitant]
     Active Substance: ESOMEPRAZOLE SODIUM
     Indication: Prophylaxis
     Dosage: UNK
     Route: 042
     Dates: start: 20220505, end: 20220505
  96. ESOMEPRAZOLE SODIUM [Concomitant]
     Active Substance: ESOMEPRAZOLE SODIUM
     Dosage: UNK
     Route: 042
     Dates: start: 20220505, end: 20220513
  97. OMEPRAZOLE SODIUM [Concomitant]
     Active Substance: OMEPRAZOLE SODIUM
     Indication: Prophylaxis
     Dosage: UNK
     Route: 042
     Dates: start: 20220423, end: 20220423
  98. SHORT PEPTIDE ENTERAL NUTRITION POWDER [Concomitant]
     Indication: Nutritional supplementation
     Dosage: NASOGASTRIC
     Dates: start: 20220507, end: 20220507
  99. HERBALS [Concomitant]
     Active Substance: HERBALS
     Indication: Antiinflammatory therapy
     Dosage: UNK
     Route: 042
     Dates: start: 20220507, end: 20220513
  100. HERBALS [Concomitant]
     Active Substance: HERBALS
     Indication: Detoxification
  101. SHENG MAI [CODONOPSIS SPP. ROOT;OPHIOPOGON JAPONICUS ROOT TUBER;SCHISA [Concomitant]
     Dosage: UNK
     Route: 042
     Dates: start: 20220508, end: 20220511
  102. HERBALS\MENTHOL [Concomitant]
     Active Substance: HERBALS\MENTHOL
     Indication: Antipyresis
     Dosage: UNK
     Route: 048
     Dates: start: 20220413, end: 2022
  103. HERBALS\MENTHOL [Concomitant]
     Active Substance: HERBALS\MENTHOL
     Indication: Detoxification
  104. LYOPHILIZING THROMBIN [Concomitant]
     Indication: Haemostasis
     Dosage: NASOGASTRIC, POWDER
     Dates: start: 20220423, end: 20220423
  105. SODIUM POLYSTYRENE SULFONATE [Concomitant]
     Active Substance: SODIUM POLYSTYRENE SULFONATE
     Indication: Mineral supplementation
     Dosage: UNK
     Route: 048
     Dates: start: 20220423, end: 20220423
  106. SODIUM POLYSTYRENE SULFONATE [Concomitant]
     Active Substance: SODIUM POLYSTYRENE SULFONATE
     Dosage: UNK
     Route: 048
     Dates: start: 20220425, end: 20220425
  107. SODIUM POLYSTYRENE SULFONATE [Concomitant]
     Active Substance: SODIUM POLYSTYRENE SULFONATE
     Dosage: UNK
     Route: 048
     Dates: start: 20220501, end: 20220501
  108. AMIODARONE HYDROCHLORIDE [Concomitant]
     Active Substance: AMIODARONE HYDROCHLORIDE
     Indication: Heart rate abnormal
     Dosage: UNK
     Route: 042
     Dates: start: 20220423, end: 20220423
  109. ERYTHROPOIETIN [Concomitant]
     Active Substance: ERYTHROPOIETIN
     Indication: Anaemia
     Dosage: UNK
     Route: 058
     Dates: start: 20220505, end: 20220505
  110. SHENG XUE BAO [Concomitant]
     Indication: Anaemia
     Dosage: SHENGXUEBAOHEJI
     Route: 048
     Dates: start: 20220505, end: 20220505
  111. SHENG XUE BAO [Concomitant]
     Dosage: SHENGXUEBAOHEJI
     Route: 048
     Dates: start: 20220507, end: 20220507
  112. DEXAMETHASONE SODIUM PHOSPHATE [Concomitant]
     Active Substance: DEXAMETHASONE PHOSPHATE\DEXAMETHASONE SODIUM PHOSPHATE
     Indication: Antiallergic therapy
     Dosage: UNK
     Route: 042
     Dates: start: 20220505, end: 20220505
  113. DIAZEPAM [Concomitant]
     Active Substance: DIAZEPAM
     Indication: Sedation
     Dosage: UNK
     Route: 042
     Dates: start: 20220512, end: 20220512
  114. VALPROATE SODIUM [Concomitant]
     Active Substance: VALPROATE SODIUM
     Indication: Anticoagulant therapy
     Dosage: UNK
     Route: 042
     Dates: start: 20220512, end: 20220512

REACTIONS (1)
  - Overdose [Unknown]
